FAERS Safety Report 24304804 (Version 1)
Quarter: 2024Q3

REPORT INFORMATION
  Report Type: Spontaneous
  Country: US (occurrence: None)
  Receive Date: 20240910
  Receipt Date: 20240910
  Transmission Date: 20241016
  Serious: No
  Sender: UNICHEM
  Company Number: US-ARIS GLOBAL-UCM202312-001540

PATIENT

DRUGS (1)
  1. TRAMADOL HCL [Suspect]
     Active Substance: TRAMADOL HYDROCHLORIDE
     Indication: Pain
     Dosage: UNKNOWN

REACTIONS (1)
  - Therapeutic response decreased [Unknown]
